FAERS Safety Report 9602998 (Version 2)
Quarter: 2013Q4

REPORT INFORMATION
  Report Type: Spontaneous
  Country: CA (occurrence: CA)
  Receive Date: 20131007
  Receipt Date: 20131011
  Transmission Date: 20140711
  Serious: Yes (Disabling, Other)
  Sender: FDA-Public Use
  Company Number: CA-PFIZER INC-2013283780

PATIENT
  Age: 37 Year
  Sex: Female

DRUGS (4)
  1. LYRICA [Suspect]
     Indication: NEURALGIA
     Dosage: 75 MG, 2X/DAY
     Route: 048
     Dates: start: 20100113
  2. YASMIN [Concomitant]
     Indication: CONTRACEPTION
     Dosage: UNK
     Dates: start: 20081127
  3. NAPROXEN [Concomitant]
     Indication: PAIN
     Dosage: 50 MG, 2X/DAY
     Dates: start: 20100504
  4. PRISTIQ [Concomitant]
     Indication: DEPRESSION
     Dosage: 50 MG, DAILY
     Dates: start: 20110815

REACTIONS (1)
  - Tibia fracture [Recovering/Resolving]
